FAERS Safety Report 4461253-7 (Version None)
Quarter: 2004Q3

REPORT INFORMATION
  Report Type: 
  Country: None (occurrence: None)
  Receive Date: 20040928
  Receipt Date: 20040922
  Transmission Date: 20050211
  Serious: Yes (Hospitalization)
  Sender: FDA-Public Use
  Company Number: FR-ROCHE-381229

PATIENT
  Age: 54 Year
  Sex: Female

DRUGS (6)
  1. RIVOTRIL [Suspect]
     Indication: MANIA
     Route: 065
     Dates: end: 20040627
  2. TERALITHE [Suspect]
     Indication: DRUG USE FOR UNKNOWN INDICATION
     Route: 048
     Dates: end: 20040628
  3. ATARAX [Suspect]
     Indication: DRUG USE FOR UNKNOWN INDICATION
     Route: 048
     Dates: end: 20040627
  4. LEPONEX [Concomitant]
  5. LAMICTAL [Concomitant]
  6. LEVOTHYROX [Concomitant]

REACTIONS (4)
  - ENCEPHALOPATHY [None]
  - MUSCULAR WEAKNESS [None]
  - SOMNOLENCE [None]
  - STUPOR [None]
